FAERS Safety Report 9134392 (Version 1)
Quarter: 2013Q1

REPORT INFORMATION
  Report Type: Spontaneous
  Country: GB (occurrence: GB)
  Receive Date: 20130304
  Receipt Date: 20130304
  Transmission Date: 20140127
  Serious: Yes (Life-Threatening, Hospitalization)
  Sender: FDA-Public Use
  Company Number: GB-ACCORD-016558

PATIENT
  Age: 65 Year
  Sex: Female
  Weight: 110 kg

DRUGS (6)
  1. LETROZOLE [Suspect]
     Indication: BREAST CANCER
     Route: 048
     Dates: start: 201208
  2. VALSARTAN [Concomitant]
  3. CITALOPRAM [Concomitant]
  4. RABEPRAZOLE [Concomitant]
  5. LEVOTHYROXINE [Concomitant]
  6. DICLOFENAC [Concomitant]

REACTIONS (3)
  - Deep vein thrombosis [Recovering/Resolving]
  - Fall [Unknown]
  - Oedema peripheral [Unknown]
